FAERS Safety Report 11908513 (Version 5)
Quarter: 2016Q2

REPORT INFORMATION
  Report Type: Report from Study
  Country: JP (occurrence: JP)
  Receive Date: 20160111
  Receipt Date: 20160411
  Transmission Date: 20160815
  Serious: Yes (Hospitalization)
  Sender: FDA-Public Use
  Company Number: JP-ALEXION-A201505236

PATIENT
  Age: 68 Year
  Sex: Male
  Weight: 168 kg

DRUGS (15)
  1. DAIKENCHUTO [Concomitant]
     Active Substance: HERBALS
     Indication: CONSTIPATION
     Dosage: 5 G, TID
     Route: 048
     Dates: start: 20151015
  2. GLYCEREB [Concomitant]
     Dosage: 400 MG, QD
     Dates: start: 20151207
  3. RINDERON                           /00008501/ [Suspect]
     Active Substance: BETAMETHASONE
     Indication: OEDEMA
     Dosage: 6 MG, BID
     Route: 042
     Dates: start: 20151204, end: 20151207
  4. TRAZODONE [Concomitant]
     Active Substance: TRAZODONE HYDROCHLORIDE
     Indication: INSOMNIA
     Dosage: 25 MG, QD
     Route: 048
     Dates: start: 20151030
  5. MAGMITT [Concomitant]
     Active Substance: MAGNESIUM OXIDE
     Indication: CONSTIPATION
     Dosage: 660 MG, TID
     Route: 048
     Dates: start: 20151015
  6. NEXIUM [Concomitant]
     Active Substance: ESOMEPRAZOLE MAGNESIUM
     Indication: PROPHYLAXIS
     Dosage: 20 MG, QD
     Route: 048
     Dates: start: 20151010
  7. LYRICA [Concomitant]
     Active Substance: PREGABALIN
     Indication: NEURALGIA
     Dosage: 75 MG, BID
     Route: 048
     Dates: start: 20151202
  8. AMITIZA [Concomitant]
     Active Substance: LUBIPROSTONE
     Indication: CONSTIPATION
     Dosage: 24 ?G, BID
     Route: 048
     Dates: start: 20151026
  9. CIPROFLOXACIN. [Concomitant]
     Active Substance: CIPROFLOXACIN
     Indication: PROPHYLAXIS
     Dosage: 500 MG, QW
     Route: 048
     Dates: start: 20151014
  10. ECULIZUMAB [Suspect]
     Active Substance: ECULIZUMAB
     Indication: GUILLAIN-BARRE SYNDROME
     Dosage: 900 MG, QW
     Route: 042
     Dates: start: 20151014, end: 20151028
  11. RINDERON                           /00008501/ [Suspect]
     Active Substance: BETAMETHASONE
     Dosage: 8 MG, QD
     Route: 042
     Dates: start: 20151207, end: 20151210
  12. RINDERON                           /00008501/ [Suspect]
     Active Substance: BETAMETHASONE
     Dosage: 4 MG, QD
     Route: 042
     Dates: start: 20151210, end: 20151212
  13. SEPAMIT-R [Concomitant]
     Active Substance: NIFEDIPINE
     Indication: HYPERTENSION
     Dosage: 10 MG, BID
     Route: 048
     Dates: start: 20151104
  14. GLYCEREB [Concomitant]
     Indication: VASOGENIC CEREBRAL OEDEMA
     Dosage: 600 ML, QD
     Route: 042
     Dates: start: 20151204
  15. POSTERISAN FORTE                   /01567801/ [Concomitant]
     Indication: ANAL FISSURE
     Dosage: 2 G, PRN
     Route: 061
     Dates: start: 20151029

REACTIONS (1)
  - Brain abscess [Recovered/Resolved]

NARRATIVE: CASE EVENT DATE: 20151215
